FAERS Safety Report 7080949-4 (Version None)
Quarter: 2010Q4

REPORT INFORMATION
  Report Type: 
  Country: None (occurrence: None)
  Receive Date: 20101103
  Receipt Date: 20101021
  Transmission Date: 20110411
  Serious: Yes (Death, Hospitalization, Other)
  Sender: FDA-Public Use
  Company Number: US-ACTELION-A-NJ2010-36463

PATIENT
  Sex: Female
  Weight: 158.73 kg

DRUGS (19)
  1. BOSENTAN TABLET 125 MG US [Suspect]
     Indication: PULMONARY ARTERIAL HYPERTENSION
     Dosage: 125 MG, BID
     Route: 048
     Dates: start: 20100702, end: 20100829
  2. BOSENTAN TABLET 125 MG US [Suspect]
     Dosage: 62.5 MG, BID
     Route: 048
     Dates: start: 20091118, end: 20100701
  3. COUMADIN [Concomitant]
  4. FLOVENT HFA [Concomitant]
  5. SYNTHROID [Concomitant]
  6. ZESTRIL [Concomitant]
  7. CARDIZEM [Concomitant]
  8. LASIX [Concomitant]
  9. POTASSIUM CHLORIDE [Concomitant]
  10. ALBUTEROL [Concomitant]
  11. NEXIUM [Concomitant]
  12. XANAX [Concomitant]
  13. SYMBICORT [Concomitant]
  14. ZINC [Concomitant]
  15. VITAMIN D [Concomitant]
  16. ECHINACEA COMPLEX [Concomitant]
  17. SLOW-FE [Concomitant]
  18. DIGOXIN [Concomitant]
  19. MUCINEX [Concomitant]

REACTIONS (10)
  - ACUTE RESPIRATORY FAILURE [None]
  - ANAEMIA [None]
  - ASTHMA [None]
  - ATRIAL FIBRILLATION [None]
  - BLOOD CREATININE INCREASED [None]
  - DEATH [None]
  - HAEMATOMA [None]
  - POLYURIA [None]
  - RENAL FAILURE ACUTE [None]
  - UPPER RESPIRATORY TRACT INFECTION [None]
